FAERS Safety Report 20559130 (Version 9)
Quarter: 2024Q2

REPORT INFORMATION
  Report Type: Spontaneous
  Country: US (occurrence: US)
  Receive Date: 20220307
  Receipt Date: 20240510
  Transmission Date: 20240716
  Serious: Yes (Hospitalization, Disabling, Other)
  Sender: FDA-Public Use
  Company Number: US-ORGANON-O2203USA000446

PATIENT
  Sex: Male

DRUGS (2)
  1. SINGULAIR [Suspect]
     Active Substance: MONTELUKAST SODIUM
     Indication: Asthma
     Dosage: 5 MILLIGRAM
     Route: 048
     Dates: start: 2008, end: 2014
  2. SINGULAIR [Suspect]
     Active Substance: MONTELUKAST SODIUM
     Indication: Asthma
     Dosage: 10 MILLIGRAM
     Route: 048
     Dates: start: 2014, end: 202103

REACTIONS (41)
  - Colitis ulcerative [Recovered/Resolved]
  - Neuropsychological symptoms [Not Recovered/Not Resolved]
  - Obsessive-compulsive disorder [Not Recovered/Not Resolved]
  - Mental disorder [Not Recovered/Not Resolved]
  - Depression [Not Recovered/Not Resolved]
  - Suicidal ideation [Unknown]
  - Aggression [Not Recovered/Not Resolved]
  - Tic [Not Recovered/Not Resolved]
  - Dysphemia [Not Recovered/Not Resolved]
  - Colitis ulcerative [Not Recovered/Not Resolved]
  - Haematochezia [Recovering/Resolving]
  - Colitis ulcerative [Not Recovered/Not Resolved]
  - Vitamin D deficiency [Unknown]
  - Overweight [Not Recovered/Not Resolved]
  - Self-injurious ideation [Unknown]
  - Anaemia [Unknown]
  - Attention deficit hyperactivity disorder [Recovering/Resolving]
  - Dysphagia [Unknown]
  - Social avoidant behaviour [Unknown]
  - Tonsillitis streptococcal [Not Recovered/Not Resolved]
  - Sleep disorder [Recovered/Resolved]
  - Stomatitis [Unknown]
  - Constipation [Unknown]
  - Anxiety [Unknown]
  - Irritability [Unknown]
  - Abdominal pain [Not Recovered/Not Resolved]
  - Visual impairment [Unknown]
  - Rash [Unknown]
  - Gastrointestinal inflammation [Unknown]
  - Otitis media [Unknown]
  - Pharyngitis streptococcal [Unknown]
  - Varicella [Unknown]
  - Frequent bowel movements [Unknown]
  - Abnormal loss of weight [Unknown]
  - Social anxiety disorder [Unknown]
  - Abdominal discomfort [Not Recovered/Not Resolved]
  - Mouth ulceration [Unknown]
  - Affective disorder [Recovering/Resolving]
  - Anger [Unknown]
  - Anxiety disorder [Unknown]
  - Intermittent explosive disorder [Unknown]

NARRATIVE: CASE EVENT DATE: 20080101
